FAERS Safety Report 19514693 (Version 4)
Quarter: 2025Q3

REPORT INFORMATION
  Report Type: Spontaneous
  Country: US (occurrence: US)
  Receive Date: 20210709
  Receipt Date: 20250722
  Transmission Date: 20251021
  Serious: No
  Sender: MERCK SHARP & DOHME LLC
  Company Number: US-009507513-2107USA001532

PATIENT
  Age: 62 Year
  Sex: Female

DRUGS (3)
  1. KEYTRUDA [Suspect]
     Active Substance: PEMBROLIZUMAB
  2. KEYTRUDA [Suspect]
     Active Substance: PEMBROLIZUMAB
     Dosage: DOSE DESCRIPTION : THERAPY EVERY 3 WEEKS
     Route: 042
     Dates: start: 20210701
  3. LENVATINIB MESYLATE [Suspect]
     Active Substance: LENVATINIB MESYLATE
     Indication: Renal cancer
     Route: 048

REACTIONS (6)
  - Skin disorder [Unknown]
  - Hypertension [Unknown]
  - Pruritus [Unknown]
  - Fatigue [Unknown]
  - Diarrhoea [Unknown]
  - Wound closure [Unknown]

NARRATIVE: CASE EVENT DATE: 20210701
